FAERS Safety Report 23842359 (Version 4)
Quarter: 2024Q4

REPORT INFORMATION
  Report Type: Spontaneous
  Country: US (occurrence: US)
  Receive Date: 20240510
  Receipt Date: 20241230
  Transmission Date: 20250115
  Serious: No
  Sender: PFIZER
  Company Number: US-PFIZER INC-202400103743

PATIENT
  Age: 77 Year
  Sex: Female

DRUGS (1)
  1. IBRANCE [Suspect]
     Active Substance: PALBOCICLIB
     Indication: Breast cancer female
     Dosage: 100 MG, CYCLIC (DAILY FOR 14 DAYS ON AND THEN 14 DAYS OFF)
     Route: 048

REACTIONS (4)
  - Arthralgia [Unknown]
  - Abdominal discomfort [Unknown]
  - Oral pain [Recovering/Resolving]
  - Bronchitis [Recovering/Resolving]
